FAERS Safety Report 8892760 (Version 1)
Quarter: 2012Q4

REPORT INFORMATION
  Report Type: 
  Country: US (occurrence: US)
  Receive Date: 20121107
  Receipt Date: 20121107
  Transmission Date: 20130627
  Serious: No
  Sender: FDA-Public Use
  Company Number: US-AMGEN-USASP2011057126

PATIENT
  Age: 59 Year
  Sex: Female
  Weight: 58.96 kg

DRUGS (18)
  1. ENBREL [Suspect]
     Indication: PRODUCT USED FOR UNKNOWN INDICATION
     Dosage: 50 mg, qwk
  2. MEDROL                             /00049601/ [Concomitant]
     Dosage: 4 mg, UNK
  3. FOSAMAX [Concomitant]
     Dosage: 5 mg, UNK
  4. CELEBREX [Concomitant]
     Dosage: 50 mg, UNK
  5. ULTRAM [Concomitant]
     Dosage: 50 mg, UNK
  6. SKELAXIN                           /00611501/ [Concomitant]
     Dosage: 800 mg, UNK
  7. LUNESTA [Concomitant]
     Dosage: 1 mg, UNK
  8. AXID                               /00867001/ [Concomitant]
     Dosage: 150 mg, UNK
  9. CLARINEX                           /01202601/ [Concomitant]
     Dosage: 5 mg, UNK
  10. METHOTREXATE [Concomitant]
     Dosage: 2.5 mg, UNK
  11. MULTIVITAMIN                       /00097801/ [Concomitant]
  12. CALCIUM +VIT D [Concomitant]
  13. FISH OIL [Concomitant]
  14. TYLENOL /00020001/ [Concomitant]
     Dosage: 325 mg, UNK
  15. TOPROL [Concomitant]
     Dosage: 100 mg, UNK
  16. ZESTRIL [Concomitant]
     Dosage: 5 mg, UNK
  17. HYDROCHLOROTHIAZIDE [Concomitant]
     Dosage: 12.5 mg, UNK
  18. FINACEA [Concomitant]

REACTIONS (4)
  - Dyspnoea [Unknown]
  - Fatigue [Unknown]
  - Gait disturbance [Unknown]
  - Upper respiratory tract infection [Unknown]
